FAERS Safety Report 6056281-4 (Version None)
Quarter: 2009Q1

REPORT INFORMATION
  Report Type: 
  Country: None (occurrence: None)
  Receive Date: 20090127
  Receipt Date: 20090127
  Transmission Date: 20090719
  Serious: Yes (Other)
  Sender: FDA-Public Use
  Company Number: None

PATIENT
  Age: 20 Year

DRUGS (3)
  1. RISPERIDONE [Suspect]
     Indication: AFFECTIVE DISORDER
     Dosage: ONCE PO BID MID NOVEMBER 2008 TO NOW
     Route: 048
     Dates: start: 20081101
  2. RISPERIDONE [Suspect]
     Indication: MENTAL RETARDATION
     Dosage: ONCE PO BID MID NOVEMBER 2008 TO NOW
     Route: 048
     Dates: start: 20081101
  3. SERTRALINE [Concomitant]

REACTIONS (5)
  - IRRITABILITY [None]
  - NEGATIVISM [None]
  - OPPOSITIONAL DEFIANT DISORDER [None]
  - PERFORMANCE STATUS DECREASED [None]
  - THERAPEUTIC RESPONSE UNEXPECTED WITH DRUG SUBSTITUTION [None]
